FAERS Safety Report 10006948 (Version 3)
Quarter: 2015Q3

REPORT INFORMATION
  Report Type: Spontaneous
  Country: US (occurrence: US)
  Receive Date: 20140313
  Receipt Date: 20150813
  Transmission Date: 20151125
  Serious: No
  Sender: FDA-Public Use
  Company Number: US-GILEAD-2013-0067412

PATIENT
  Age: 38 Year
  Sex: Female

DRUGS (4)
  1. EPOPROSTENOL. [Concomitant]
     Active Substance: EPOPROSTENOL
  2. LETAIRIS [Suspect]
     Active Substance: AMBRISENTAN
     Indication: PULMONARY HYPERTENSION
  3. ADCIRCA [Concomitant]
     Active Substance: TADALAFIL
  4. LETAIRIS [Suspect]
     Active Substance: AMBRISENTAN
     Indication: UNEVALUABLE EVENT
     Dosage: 10 MG, QD
     Route: 048
     Dates: start: 20121120

REACTIONS (3)
  - Diarrhoea [Unknown]
  - Fluid retention [Unknown]
  - Weight decreased [Unknown]
